FAERS Safety Report 14531900 (Version 2)
Quarter: 2019Q4

REPORT INFORMATION
  Report Type: Spontaneous
  Country: RU (occurrence: RU)
  Receive Date: 20180214
  Receipt Date: 20191212
  Transmission Date: 20200122
  Serious: Yes (Other)
  Sender: FDA-Public Use
  Company Number: PHHY2018RU019387

PATIENT
  Sex: Female

DRUGS (2)
  1. COSENTYX [Suspect]
     Active Substance: SECUKINUMAB
     Dosage: 150 MG, UNK
     Route: 058
     Dates: start: 20180120, end: 20180120
  2. COSENTYX [Suspect]
     Active Substance: SECUKINUMAB
     Indication: ANKYLOSING SPONDYLITIS
     Dosage: 150 MG, UNK
     Route: 058
     Dates: start: 201709

REACTIONS (7)
  - Drug ineffective [Unknown]
  - Salpingo-oophoritis [Recovered/Resolved]
  - Peripheral swelling [Unknown]
  - Concomitant disease aggravated [Recovered/Resolved]
  - Laboratory test abnormal [Unknown]
  - Arthritis [Unknown]
  - Ovarian cyst [Recovered/Resolved]

NARRATIVE: CASE EVENT DATE: 201801
